FAERS Safety Report 4508984-8 (Version None)
Quarter: 2004Q4

REPORT INFORMATION
  Report Type: 
  Country: None (occurrence: None)
  Receive Date: 20041122
  Receipt Date: 20041122
  Transmission Date: 20050328
  Serious: Yes (Disabling)
  Sender: FDA-Public Use
  Company Number: None

PATIENT
  Age: 8 Year
  Sex: Male
  Weight: 27.6694 kg

DRUGS (2)
  1. SINGULAIR [Suspect]
     Indication: ASTHMA
     Dosage: 5 MG QD ORAL
     Route: 048
     Dates: start: 20000322, end: 20000419
  2. ALBUTEROL [Concomitant]

REACTIONS (2)
  - DEPRESSION [None]
  - MORBID THOUGHTS [None]
